FAERS Safety Report 6533401-6 (Version None)
Quarter: 2010Q1

REPORT INFORMATION
  Report Type: 
  Country: None (occurrence: None)
  Receive Date: 20100111
  Receipt Date: 20100107
  Transmission Date: 20100710
  Serious: Yes (Hospitalization, Other)
  Sender: FDA-Public Use
  Company Number: US-ROCHE-666690

PATIENT
  Sex: Male
  Weight: 114.8 kg

DRUGS (3)
  1. CAPECITABINE [Suspect]
     Indication: HEPATIC NEOPLASM MALIGNANT
     Route: 048
     Dates: start: 20090929
  2. ERLOTINIB [Suspect]
     Indication: HEPATIC NEOPLASM MALIGNANT
     Route: 048
  3. THALOMID [Suspect]
     Indication: DRUG USE FOR UNKNOWN INDICATION
     Dosage: TAKEN AT NIGHT
     Route: 048

REACTIONS (6)
  - BLOOD ALBUMIN DECREASED [None]
  - CONSTIPATION [None]
  - FULL BLOOD COUNT DECREASED [None]
  - METASTASES TO PANCREAS [None]
  - OEDEMA PERIPHERAL [None]
  - TRANSFUSION [None]
